FAERS Safety Report 13573631 (Version 1)
Quarter: 2017Q2

REPORT INFORMATION
  Report Type: Spontaneous
  Country: US (occurrence: US)
  Receive Date: 20170523
  Receipt Date: 20170523
  Transmission Date: 20170830
  Serious: Yes (Other)
  Sender: FDA-Public Use
  Company Number: None

PATIENT
  Age: 58 Year
  Sex: Male
  Weight: 60 kg

DRUGS (4)
  1. FLUTICASONE (FLONASE) [Concomitant]
  2. CALCIUM CARBONATE-VITAMIN D3 (CALCIUM 500 + D) [Concomitant]
  3. ENZALUTAMIDE 160 MG CATALENT PHARMA SOLUTIONS FOR ASTELLA [Suspect]
     Active Substance: ENZALUTAMIDE
     Indication: PROSTATE CANCER
     Route: 048
     Dates: start: 20161108, end: 20170518
  4. MULTIVITAMIN (HEXAVITAMIN) [Concomitant]

REACTIONS (1)
  - Hypertriglyceridaemia [None]

NARRATIVE: CASE EVENT DATE: 20170515
